FAERS Safety Report 10087448 (Version 1)
Quarter: 2014Q2

REPORT INFORMATION
  Report Type: Spontaneous
  Country: US (occurrence: US)
  Receive Date: 20140418
  Receipt Date: 20140418
  Transmission Date: 20141212
  Serious: Yes (Other)
  Sender: FDA-Public Use
  Company Number: US-NAPPMUNDI-USA-2014-0112862

PATIENT
  Age: 14 Year
  Sex: Male

DRUGS (7)
  1. OXYCONTIN (NDA 22-272) [Suspect]
     Indication: DRUG ABUSE
     Dosage: UNKNOWN
  2. HYDROMORPHONE HCL (SIMILAR TO 19-892) [Suspect]
     Indication: DRUG ABUSE
     Dosage: UNKNOWN
  3. HYDROCODONE                        /00060002/ [Suspect]
     Indication: DRUG ABUSE
     Dosage: UNKNOWN
  4. MEPERIDINE                         /00016301/ [Suspect]
     Indication: DRUG ABUSE
     Dosage: UNKNOWN
  5. METHADONE [Suspect]
     Indication: DRUG ABUSE
     Dosage: UNKNOWN
  6. RITALIN [Concomitant]
     Indication: ATTENTION DEFICIT/HYPERACTIVITY DISORDER
     Dosage: UNKNOWN
  7. ANTIDEPRESSANTS [Concomitant]
     Indication: MAJOR DEPRESSION
     Dosage: UNKNOWN

REACTIONS (3)
  - Drug dependence [Unknown]
  - Drug abuse [Unknown]
  - Euphoric mood [Unknown]
